FAERS Safety Report 6974826-4 (Version None)
Quarter: 2010Q3

REPORT INFORMATION
  Report Type: 
  Country: None (occurrence: None)
  Receive Date: 20100824
  Receipt Date: 20100707
  Transmission Date: 20110219
  Serious: No
  Sender: FDA-Public Use
  Company Number: 311176

PATIENT
  Sex: Female

DRUGS (3)
  1. VICTOZA [Suspect]
     Indication: TYPE 2 DIABETES MELLITUS
     Dosage: 1.8 MG, QD, SUBCUTANEOUS; 1.2 MG, QD, SUBCUTANEOUS; 0.6MG, SUBCUTANEOUS
     Dates: start: 20100624
  2. VICTOZA [Suspect]
     Indication: TYPE 2 DIABETES MELLITUS
     Dosage: 1.8 MG, QD, SUBCUTANEOUS; 1.2 MG, QD, SUBCUTANEOUS; 0.6MG, SUBCUTANEOUS
     Dates: start: 20100702
  3. AMARYL [Concomitant]

REACTIONS (6)
  - DYSGEUSIA [None]
  - NASAL CONGESTION [None]
  - NAUSEA [None]
  - OROPHARYNGEAL PAIN [None]
  - SWELLING FACE [None]
  - WEIGHT DECREASED [None]
